FAERS Safety Report 25591479 (Version 2)
Quarter: 2025Q3

REPORT INFORMATION
  Report Type: Spontaneous
  Country: EU (occurrence: EU)
  Receive Date: 20250722
  Receipt Date: 20250807
  Transmission Date: 20251020
  Serious: Yes (Hospitalization, Other)
  Sender: ALEXION PHARMACEUTICALS
  Company Number: EU-SA-2025SA202425

PATIENT
  Age: 4 Month
  Sex: Male

DRUGS (1)
  1. NIRSEVIMAB [Suspect]
     Active Substance: NIRSEVIMAB
     Indication: Respiratory syncytial virus infection
     Route: 065

REACTIONS (5)
  - Respiratory syncytial virus infection [Unknown]
  - Pneumonia respiratory syncytial viral [Unknown]
  - Superinfection bacterial [Unknown]
  - Tachypnoea [Unknown]
  - Apnoea [Unknown]
